FAERS Safety Report 20567111 (Version 2)
Quarter: 2022Q1

REPORT INFORMATION
  Report Type: Spontaneous
  Country: CN (occurrence: CN)
  Receive Date: 20220308
  Receipt Date: 20220315
  Transmission Date: 20220423
  Serious: Yes (Other)
  Sender: FDA-Public Use
  Company Number: CN-MLMSERVICE-20220224-3399208-1

PATIENT
  Age: 45 Year
  Sex: Female

DRUGS (4)
  1. CRIZOTINIB [Suspect]
     Active Substance: CRIZOTINIB
     Indication: Adenosquamous cell lung cancer stage III
     Dosage: 250 MG, 2X/DAY (5 CYCLIC)
     Route: 048
     Dates: start: 202011
  2. CISPLATIN [Suspect]
     Active Substance: CISPLATIN
     Indication: Adenosquamous cell lung cancer stage III
     Dosage: 600 MG, (D1-2)
     Dates: start: 202011
  3. BEVACIZUMAB [Suspect]
     Active Substance: BEVACIZUMAB
     Indication: Adenosquamous cell lung cancer stage III
     Dosage: 2500 MG, CYCLIC (D1)
     Dates: start: 202011
  4. GEMCITABINE [Suspect]
     Active Substance: GEMCITABINE
     Indication: Adenosquamous cell lung cancer stage III
     Dosage: 1.6 G, CYCLIC (D1)
     Dates: start: 202011

REACTIONS (2)
  - Myelosuppression [Unknown]
  - Nausea [Unknown]

NARRATIVE: CASE EVENT DATE: 20210101
